FAERS Safety Report 7240408-2 (Version None)
Quarter: 2011Q1

REPORT INFORMATION
  Report Type: 
  Country: None (occurrence: None)
  Receive Date: 20110124
  Receipt Date: 20110118
  Transmission Date: 20110831
  Serious: No
  Sender: FDA-Public Use
  Company Number: US-JNJFOC-20101106304

PATIENT
  Sex: Female

DRUGS (7)
  1. INDERAL ER [Concomitant]
  2. INVEGA SUSTENNA [Suspect]
     Indication: SCHIZOPHRENIA
     Route: 030
  3. BENZTROPINE MESYLATE [Concomitant]
  4. SEROQUEL [Concomitant]
  5. NALTREXONE [Concomitant]
  6. CITALOPRAM [Concomitant]
  7. INVEGA SUSTENNA [Suspect]
     Route: 030

REACTIONS (1)
  - INJECTION SITE REACTION [None]
